FAERS Safety Report 5195220-5 (Version None)
Quarter: 2006Q4

REPORT INFORMATION
  Report Type: 
  Country: None (occurrence: None)
  Receive Date: 20061020
  Receipt Date: 20060309
  Transmission Date: 20070319
  Serious: Yes (Hospitalization)
  Sender: FDA-Public Use
  Company Number: US-JNJFOC-20060303416

PATIENT
  Age: 64 Year
  Sex: Female
  Weight: 65 kg

DRUGS (12)
  1. FLEXERIL [Suspect]
     Indication: MUSCLE SPASMS
  2. POTASSIUM CHLORIDE [Concomitant]
  3. NITROSTAT [Concomitant]
  4. GLYBURIDE [Concomitant]
  5. HEPARIN [Concomitant]
  6. PEPCID [Concomitant]
  7. LOPRESSOR [Concomitant]
  8. REGLAN [Concomitant]
  9. ASPIRIN [Concomitant]
  10. UNASYN (UNACID) [Concomitant]
  11. DILAUDID [Concomitant]
  12. MAALOX FAST BLOCKER [Concomitant]

REACTIONS (1)
  - MENTAL DISORDER [None]
